FAERS Safety Report 16118369 (Version 1)
Quarter: 2019Q1

REPORT INFORMATION
  Report Type: Spontaneous
  Country: DE (occurrence: DE)
  Receive Date: 20190326
  Receipt Date: 20190326
  Transmission Date: 20190418
  Serious: Yes (Other)
  Sender: FDA-Public Use
  Company Number: DE-ASTRAZENECA-2019SE43663

PATIENT
  Sex: Male

DRUGS (1)
  1. MIFLONIDE BREEZHALER [Suspect]
     Active Substance: BUDESONIDE
     Indication: PRODUCT USED FOR UNKNOWN INDICATION
     Dosage: 460 UG, UNK460UG/INHAL
     Route: 065

REACTIONS (3)
  - Foreign body aspiration [Unknown]
  - Device malfunction [Unknown]
  - Product physical issue [Unknown]
